FAERS Safety Report 8340824-1 (Version None)
Quarter: 2012Q1

REPORT INFORMATION
  Report Type: 
  Country: None (occurrence: None)
  Receive Date: 20120329
  Receipt Date: 20081001
  Transmission Date: 20120608
  Serious: Yes (Other)
  Sender: FDA-Public Use
  Company Number: PHEH2008US11668

PATIENT
  Age: 81 Year

DRUGS (1)
  1. EXELON [Suspect]

REACTIONS (1)
  - WEIGHT DECREASED [None]
